FAERS Safety Report 17728906 (Version 4)
Quarter: 2020Q3

REPORT INFORMATION
  Report Type: Report from Study
  Country: US (occurrence: US)
  Receive Date: 20200430
  Receipt Date: 20200909
  Transmission Date: 20201102
  Serious: Yes (Hospitalization, Other)
  Sender: FDA-Public Use
  Company Number: US-TEVA-2020-US-1228606

PATIENT
  Age: 43 Year
  Sex: Female

DRUGS (2)
  1. COPAXONE [Suspect]
     Active Substance: GLATIRAMER ACETATE
     Dates: start: 20200115
  2. SOLU?MEDROL [Suspect]
     Active Substance: METHYLPREDNISOLONE SODIUM SUCCINATE
     Route: 065
     Dates: start: 20200326, end: 20200331

REACTIONS (27)
  - Hyperhidrosis [Unknown]
  - Injection site dryness [Unknown]
  - Restlessness [Unknown]
  - Decreased appetite [Recovering/Resolving]
  - Psychotic disorder [Recovering/Resolving]
  - Encephalopathy [Unknown]
  - Stress at work [Unknown]
  - Paraesthesia [Recovered/Resolved]
  - Hypoaesthesia [Recovered/Resolved]
  - Grip strength decreased [Recovered/Resolved]
  - Insomnia [Unknown]
  - Injection site bruising [Unknown]
  - Rhabdomyolysis [Unknown]
  - Imprisonment [Unknown]
  - Feeling abnormal [Recovering/Resolving]
  - Urinary tract infection [Unknown]
  - Neck pain [Recovered/Resolved]
  - Wrong technique in product usage process [Unknown]
  - Blood creatine phosphokinase increased [Unknown]
  - Peripheral swelling [Unknown]
  - Injection site mass [Unknown]
  - Dental care [Unknown]
  - Injection site pain [Unknown]
  - Hepatic enzyme abnormal [Unknown]
  - Blood lactate dehydrogenase increased [Unknown]
  - Injection site haematoma [Unknown]
  - Injection site pruritus [Unknown]

NARRATIVE: CASE EVENT DATE: 2020
